FAERS Safety Report 25151499 (Version 1)
Quarter: 2025Q2

REPORT INFORMATION
  Report Type: Report from Study
  Country: US (occurrence: US)
  Receive Date: 20250402
  Receipt Date: 20250402
  Transmission Date: 20250716
  Serious: No
  Sender: AVERITAS
  Company Number: US-GRUNENTHAL-2025-104195

PATIENT
  Sex: Female

DRUGS (1)
  1. QUTENZA [Suspect]
     Active Substance: CAPSAICIN
     Indication: Diabetic neuropathy
     Route: 061
     Dates: start: 20241218, end: 20241218

REACTIONS (5)
  - Application site swelling [Unknown]
  - Gait inability [Unknown]
  - Nausea [Unknown]
  - Malaise [Unknown]
  - Application site pain [Unknown]

NARRATIVE: CASE EVENT DATE: 20241201
